FAERS Safety Report 5140696-2 (Version None)
Quarter: 2006Q4

REPORT INFORMATION
  Report Type: 
  Country: None (occurrence: None)
  Receive Date: 20061025
  Receipt Date: 20061016
  Transmission Date: 20070319
  Serious: Yes (Life-Threatening, Hospitalization, Other)
  Sender: FDA-Public Use
  Company Number: 2006090058

PATIENT
  Age: 58 Year
  Sex: Female
  Weight: 55 kg

DRUGS (16)
  1. LIPITOR [Suspect]
     Indication: HYPERCHOLESTEROLAEMIA
     Dosage: 10 MG (10 MG, 1 IN 1 D), ORAL
     Route: 048
     Dates: start: 20060116
  2. HALCION [Suspect]
     Indication: ANXIETY
     Dosage: 1 TABLET (DAILY), ORAL
     Route: 048
  3. HALCION [Suspect]
     Indication: INSOMNIA
     Dosage: 1 TABLET (DAILY), ORAL
     Route: 048
  4. ETIZOLAM (ETIZOLAM) [Suspect]
     Indication: ANXIETY
     Dosage: 1 MG (0.5 MG, TWICE DAILY), ORAL
     Route: 048
     Dates: start: 19960904
  5. ETIZOLAM (ETIZOLAM) [Suspect]
     Indication: INSOMNIA
     Dosage: 1 MG (0.5 MG, TWICE DAILY), ORAL
     Route: 048
     Dates: start: 19960904
  6. TRIAZOLAM [Suspect]
     Indication: ANXIETY
     Dosage: (0.25 MG, 1 IN 1 D), ORAL
     Route: 048
     Dates: start: 19960924
  7. TRIAZOLAM [Suspect]
     Indication: INSOMNIA
     Dosage: (0.25 MG, 1 IN 1 D), ORAL
     Route: 048
     Dates: start: 19960924
  8. FLUNITRAZEPAM (FLUNITRAZEPAM) [Suspect]
     Indication: ANXIETY
     Dosage: 1 TABLET (DAILY), ORAL
     Route: 048
     Dates: start: 19971212
  9. FLUNITRAZEPAM (FLUNITRAZEPAM) [Suspect]
     Indication: INSOMNIA
     Dosage: 1 TABLET (DAILY), ORAL
     Route: 048
     Dates: start: 19971212
  10. BROTIZOLAM (BROTIZOLAM) [Suspect]
     Indication: ANXIETY
     Dosage: 0.25 MG (0.25 MG, D), ORAL
     Route: 048
     Dates: start: 19990716
  11. BROTIZOLAM (BROTIZOLAM) [Suspect]
     Indication: INSOMNIA
     Dosage: 0.25 MG (0.25 MG, D), ORAL
     Route: 048
     Dates: start: 19990716
  12. CHLORPROMAZINE [Suspect]
     Indication: ANXIETY
     Dosage: 12.5 MG (12.5 MG,D), ORAL
     Route: 048
     Dates: start: 20050819
  13. CHLORPROMAZINE [Suspect]
     Indication: INSOMNIA
     Dosage: 12.5 MG (12.5 MG,D), ORAL
     Route: 048
     Dates: start: 20050819
  14. NORVASC [Concomitant]
  15. ECABET MONOSODIUM (ECABET MONOSODIUM) [Concomitant]
  16. LANSOPRAZOLE [Concomitant]

REACTIONS (9)
  - DEHYDRATION [None]
  - DIABETES MELLITUS [None]
  - DRUG INEFFECTIVE [None]
  - GASTRIC ULCER [None]
  - HYPERTENSION [None]
  - INFECTION [None]
  - INSOMNIA [None]
  - RHABDOMYOLYSIS [None]
  - TREATMENT NONCOMPLIANCE [None]
